FAERS Safety Report 10980133 (Version 2)
Quarter: 2015Q2

REPORT INFORMATION
  Report Type: Spontaneous
  Country: US (occurrence: US)
  Receive Date: 20150402
  Receipt Date: 20150511
  Transmission Date: 20150821
  Serious: No
  Sender: FDA-Public Use
  Company Number: US-GLAXOSMITHKLINE-US2015GSK025242

PATIENT
  Age: 81 Year
  Sex: Female

DRUGS (1)
  1. VENTOLIN HFA [Suspect]
     Active Substance: ALBUTEROL SULFATE
     Indication: BRONCHITIS
     Dosage: 2 PUFF(S), UNK
     Route: 055
     Dates: start: 20150219, end: 20150220

REACTIONS (8)
  - Product quality issue [Unknown]
  - Asthenia [Unknown]
  - Dizziness [Recovered/Resolved]
  - Cough [Unknown]
  - Malaise [Unknown]
  - Palpitations [Recovered/Resolved]
  - Tremor [Unknown]
  - Dyspnoea [Unknown]

NARRATIVE: CASE EVENT DATE: 20150219
